FAERS Safety Report 17984721 (Version 1)
Quarter: 2020Q3

REPORT INFORMATION
  Report Type: Spontaneous
  Country: US (occurrence: US)
  Receive Date: 20200706
  Receipt Date: 20200706
  Transmission Date: 20201103
  Serious: No
  Sender: FDA-Public Use
  Company Number: US-SA-2020SA172712

PATIENT

DRUGS (6)
  1. PRALUENT [Suspect]
     Active Substance: ALIROCUMAB
     Indication: TYPE V HYPERLIPIDAEMIA
     Dosage: 75 MG, QOW
     Route: 048
     Dates: start: 20200603
  2. ASPIRIN EC [Concomitant]
     Active Substance: ASPIRIN
  3. MELOXICAM. [Concomitant]
     Active Substance: MELOXICAM
  4. AMBIEN [Concomitant]
     Active Substance: ZOLPIDEM TARTRATE
  5. ZETIA [Concomitant]
     Active Substance: EZETIMIBE
  6. VITAMIN C [Concomitant]
     Active Substance: ASCORBIC ACID

REACTIONS (2)
  - Incorrect route of product administration [Unknown]
  - Nausea [Unknown]

NARRATIVE: CASE EVENT DATE: 202006
